FAERS Safety Report 4377439-6 (Version None)
Quarter: 2004Q2

REPORT INFORMATION
  Report Type: 
  Country: None (occurrence: None)
  Receive Date: 20040614
  Receipt Date: 20040614
  Transmission Date: 20050107
  Serious: No
  Sender: FDA-Public Use
  Company Number: None

PATIENT
  Age: 79 Year
  Sex: Male
  Weight: 74.8435 kg

DRUGS (1)
  1. CELEBREX [Suspect]
     Indication: LOCALISED OSTEOARTHRITIS

REACTIONS (3)
  - GLOMERULONEPHRITIS FOCAL [None]
  - NEPHROTIC SYNDROME [None]
  - RENAL FAILURE [None]
